FAERS Safety Report 5420569-8 (Version None)
Quarter: 2007Q3

REPORT INFORMATION
  Report Type: 
  Country: None (occurrence: None)
  Receive Date: 20070821
  Receipt Date: 20070815
  Transmission Date: 20080115
  Serious: Yes (Hospitalization)
  Sender: FDA-Public Use
  Company Number: US-JNJFOC-20070803473

PATIENT
  Age: 40 Year
  Sex: Male

DRUGS (4)
  1. FLEXERIL [Suspect]
     Indication: DRUG USE FOR UNKNOWN INDICATION
     Dosage: DOSE AND FREQUENCY UNKNOWN
  2. EX-LAX [Suspect]
     Indication: CONSTIPATION
  3. NORCO [Concomitant]
  4. XANAX [Concomitant]

REACTIONS (2)
  - DYSPEPSIA [None]
  - INTERVERTEBRAL DISC PROTRUSION [None]
